FAERS Safety Report 5335485-X (Version None)
Quarter: 2007Q2

REPORT INFORMATION
  Report Type: 
  Country: None (occurrence: None)
  Receive Date: 20070525
  Receipt Date: 20070516
  Transmission Date: 20071010
  Serious: Yes (Other)
  Sender: FDA-Public Use
  Company Number: US-PFIZER INC-2007040475

PATIENT
  Sex: Female
  Weight: 61.363 kg

DRUGS (4)
  1. LIPITOR [Suspect]
     Indication: BLOOD CHOLESTEROL
  2. NORVASC [Concomitant]
     Indication: HYPERTENSION
  3. AVAPRO [Concomitant]
  4. CORGARD [Concomitant]

REACTIONS (2)
  - HYPOKINESIA [None]
  - MONOPLEGIA [None]
